FAERS Safety Report 12518184 (Version 6)
Quarter: 2018Q3

REPORT INFORMATION
  Report Type: Report from Study
  Country: ES (occurrence: ES)
  Receive Date: 20160630
  Receipt Date: 20180911
  Transmission Date: 20181010
  Serious: Yes (Life-Threatening, Hospitalization)
  Sender: FDA-Public Use
  Company Number: ES-BIOGEN-2014BI047401

PATIENT
  Age: 51 Year
  Sex: Male
  Weight: 80 kg

DRUGS (5)
  1. CLONAZEPAM. [Concomitant]
     Active Substance: CLONAZEPAM
     Indication: MUSCLE SPASTICITY
     Route: 048
     Dates: start: 20141211
  2. LIORESAL [Concomitant]
     Active Substance: BACLOFEN
     Indication: MUSCLE SPASTICITY
     Route: 065
     Dates: start: 20141201
  3. TYSABRI [Suspect]
     Active Substance: NATALIZUMAB
     Indication: MULTIPLE SCLEROSIS
     Route: 042
     Dates: start: 20090519, end: 20140411
  4. TYSABRI [Suspect]
     Active Substance: NATALIZUMAB
     Route: 042
  5. OXIBUTININA [Concomitant]
     Active Substance: OXYBUTYNIN
     Indication: URINARY INCONTINENCE
     Route: 065
     Dates: start: 20141229

REACTIONS (3)
  - Progressive multifocal leukoencephalopathy [Not Recovered/Not Resolved]
  - Immune reconstitution inflammatory syndrome [Recovered/Resolved with Sequelae]
  - Prescribed underdose [Unknown]

NARRATIVE: CASE EVENT DATE: 20140505
